FAERS Safety Report 21120371 (Version 1)
Quarter: 2022Q3

REPORT INFORMATION
  Report Type: Report from Study
  Country: US (occurrence: US)
  Receive Date: 20220722
  Receipt Date: 20220722
  Transmission Date: 20221026
  Serious: Yes (Life-Threatening, Other)
  Sender: FDA-Public Use
  Company Number: US-ABBVIE-22K-163-4475796-00

PATIENT
  Age: 60 Year
  Sex: Female

DRUGS (1)
  1. HUMIRA [Suspect]
     Active Substance: ADALIMUMAB
     Indication: Crohn^s disease
     Dosage: 1/2 DOSE
     Route: 058
     Dates: start: 20210719

REACTIONS (9)
  - Anxiety [Unknown]
  - Cardiac arrest [Unknown]
  - Intestinal operation [Unknown]
  - Large intestinal ulcer [Unknown]
  - Joint swelling [Unknown]
  - Weight decreased [Unknown]
  - White blood cell count increased [Unknown]
  - Diverticulitis [Unknown]
  - Herpes zoster [Unknown]

NARRATIVE: CASE EVENT DATE: 20210719
